FAERS Safety Report 7753661-3 (Version None)
Quarter: 2011Q3

REPORT INFORMATION
  Report Type: 
  Country: None (occurrence: None)
  Receive Date: 20110915
  Receipt Date: 20110915
  Transmission Date: 20111222
  Serious: Yes (Other)
  Sender: FDA-Public Use
  Company Number: None

PATIENT
  Age: 56 Year
  Sex: Female
  Weight: 83.914 kg

DRUGS (1)
  1. AMLODIPINE [Suspect]
     Indication: MIGRAINE PROPHYLAXIS
     Dosage: 10 MG
     Route: 048
     Dates: start: 20110722, end: 20110810

REACTIONS (5)
  - HEADACHE [None]
  - PRODUCT MEASURED POTENCY ISSUE [None]
  - CONDITION AGGRAVATED [None]
  - DRUG INEFFECTIVE [None]
  - PRODUCT SUBSTITUTION ISSUE [None]
